FAERS Safety Report 6626199-4 (Version None)
Quarter: 2010Q1

REPORT INFORMATION
  Report Type: 
  Country: None (occurrence: None)
  Receive Date: 20100309
  Receipt Date: 20100309
  Transmission Date: 20100710
  Serious: Yes (Other)
  Sender: FDA-Public Use
  Company Number: None

PATIENT
  Age: 87 Year
  Sex: Female
  Weight: 59.5 kg

DRUGS (2)
  1. AMLODIPINE BESYLATE 5MG ONE TABLET DAILY PO [Suspect]
     Indication: HYPERTENSION
     Dosage: 5MG ONE TABLET DAILY PO
     Route: 048
     Dates: start: 20040513
  2. AMLODIPINE BESYLATE 5MG ONE TABLET DAILY PO [Suspect]
     Indication: HYPERTENSION
     Dosage: 5MG ONE TABLET DAILY PO
     Route: 048
     Dates: start: 20070510

REACTIONS (5)
  - DEPRESSION [None]
  - FATIGUE [None]
  - HEADACHE [None]
  - MOUTH ULCERATION [None]
  - PRODUCT SUBSTITUTION ISSUE [None]
